FAERS Safety Report 24114060 (Version 3)
Quarter: 2024Q3

REPORT INFORMATION
  Report Type: Spontaneous
  Country: CO (occurrence: CO)
  Receive Date: 20240720
  Receipt Date: 20240812
  Transmission Date: 20241017
  Serious: Yes (Hospitalization, Disabling)
  Sender: CELLTRION
  Company Number: CO-CELLTRION INC.-2024CO017295

PATIENT

DRUGS (2)
  1. TRUXIMA [Suspect]
     Active Substance: RITUXIMAB-ABBS
     Indication: Chronic inflammatory demyelinating polyradiculoneuropathy
     Dosage: 1000 MG
     Route: 042
     Dates: start: 20240630
  2. TRUXIMA [Suspect]
     Active Substance: RITUXIMAB-ABBS
     Dosage: 1000 MG, FREQUENCY: 0 - 15 DAYS (DIVIDED INTO 500 MG IN THE TWO CYCLES)/THE PRESCRIPTION IS FOR TWO
     Route: 042
     Dates: start: 20240703

REACTIONS (3)
  - Condition aggravated [Not Recovered/Not Resolved]
  - Eye irritation [Not Recovered/Not Resolved]
  - Off label use [Unknown]

NARRATIVE: CASE EVENT DATE: 20240703
